FAERS Safety Report 5730334-X (Version None)
Quarter: 2008Q2

REPORT INFORMATION
  Report Type: 
  Country: None (occurrence: None)
  Receive Date: 20080502
  Receipt Date: 20080424
  Transmission Date: 20081010
  Serious: Yes (Other)
  Sender: FDA-Public Use
  Company Number: GXKR2008GB03941

PATIENT
  Age: 6 Year
  Sex: Female
  Weight: 29.8 kg

DRUGS (1)
  1. RANITIDINE [Suspect]
     Indication: GASTROOESOPHAGEAL REFLUX DISEASE
     Dosage: 100 MG, BID, ORAL
     Route: 048
     Dates: start: 20080306, end: 20080319

REACTIONS (1)
  - TOXIC EPIDERMAL NECROLYSIS [None]
